FAERS Safety Report 20654817 (Version 1)
Quarter: 2022Q1

REPORT INFORMATION
  Report Type: Spontaneous
  Country: US (occurrence: None)
  Receive Date: 20220330
  Receipt Date: 20220330
  Transmission Date: 20220423
  Serious: No
  Sender: FDA-Public Use
  Company Number: None

PATIENT
  Age: 49 Year
  Sex: Female
  Weight: 73.8 kg

DRUGS (1)
  1. LEVOTHYROXINE [Suspect]
     Active Substance: LEVOTHYROXINE
     Dosage: OTHER QUANTITY : 1 TABLET(S);?FREQUENCY : DAILY;?
     Route: 048

REACTIONS (21)
  - Pain [None]
  - Bradycardia [None]
  - Neuralgia [None]
  - Cerebrovascular accident [None]
  - Tachycardia [None]
  - Ill-defined disorder [None]
  - Arrhythmia [None]
  - Affect lability [None]
  - Anxiety [None]
  - Hyperhidrosis [None]
  - Chest pain [None]
  - Crying [None]
  - Psychotic disorder [None]
  - Hormone level abnormal [None]
  - Electric shock sensation [None]
  - Visual impairment [None]
  - Mental disorder [None]
  - Mobility decreased [None]
  - Paraesthesia [None]
  - Burning sensation [None]
  - General symptom [None]

NARRATIVE: CASE EVENT DATE: 20210701
